FAERS Safety Report 9759503 (Version 2)
Quarter: 2014Q1

REPORT INFORMATION
  Report Type: Spontaneous
  Country: JP (occurrence: JP)
  Receive Date: 20131216
  Receipt Date: 20140115
  Transmission Date: 20141002
  Serious: Yes (Hospitalization)
  Sender: FDA-Public Use
  Company Number: JP-BAYER-2013-149486

PATIENT
  Age: 25 Year
  Sex: Male
  Weight: 72.11 kg

DRUGS (7)
  1. BAYASPIRIN [Suspect]
     Indication: THROMBOSIS PROPHYLAXIS
     Dosage: DAILY DOSE 100 MG
     Route: 048
     Dates: start: 2012, end: 2012
  2. CLOPIDOGREL SULFATE [Suspect]
     Indication: THROMBOSIS PROPHYLAXIS
     Dosage: DAILY DOSE 75 MG
     Route: 048
     Dates: start: 2012, end: 2012
  3. TICLOPIDINE HYDROCHLORIDE [Suspect]
     Indication: THROMBOSIS PROPHYLAXIS
     Dosage: DAILY DOSE 200 MG
     Route: 048
     Dates: start: 2012, end: 2012
  4. CILOSTAZOL [Suspect]
     Indication: THROMBOSIS PROPHYLAXIS
     Dosage: DAILY DOSE 200 MG
     Route: 048
     Dates: start: 2012
  5. WARFARIN POTASSIUM [Concomitant]
     Indication: ANTIPHOSPHOLIPID SYNDROME
     Dosage: DAILY DOSE 4 MG
     Route: 048
     Dates: start: 2011
  6. HEPARIN [Concomitant]
  7. TRAPIDIL [Concomitant]
     Dosage: 300 MG, QD

REACTIONS (3)
  - Eosinophil count increased [Recovered/Resolved]
  - Pyrexia [Recovered/Resolved]
  - Rash generalised [Recovered/Resolved]
